FAERS Safety Report 5737199-0 (Version None)
Quarter: 2008Q2

REPORT INFORMATION
  Report Type: 
  Country: None (occurrence: None)
  Receive Date: 20080512
  Receipt Date: 20080512
  Transmission Date: 20081010
  Serious: Yes (Other)
  Sender: FDA-Public Use
  Company Number: None

PATIENT
  Age: 58 Year
  Sex: Male
  Weight: 88.905 kg

DRUGS (1)
  1. DIGITEK  0.25 MG MYLAN BERTEK [Suspect]
     Indication: MYOCARDIAL INFARCTION
     Dosage: 90 TABLET ONCE DAILY
     Dates: start: 20080403, end: 20080507

REACTIONS (7)
  - DIZZINESS [None]
  - FATIGUE [None]
  - PALLOR [None]
  - PARAESTHESIA [None]
  - PERIPHERAL COLDNESS [None]
  - PHARMACEUTICAL PRODUCT COMPLAINT [None]
  - SKIN DISCOLOURATION [None]
